FAERS Safety Report 13859173 (Version 1)
Quarter: 2017Q3

REPORT INFORMATION
  Report Type: Spontaneous
  Country: US (occurrence: US)
  Receive Date: 20170811
  Receipt Date: 20170811
  Transmission Date: 20171127
  Serious: Yes (Disabling)
  Sender: FDA-Public Use
  Company Number: None

PATIENT
  Age: 67 Year
  Sex: Male
  Weight: 100.7 kg

DRUGS (5)
  1. POTASSIUM CITRATE. [Suspect]
     Active Substance: POTASSIUM CITRATE
     Indication: PRODUCT USED FOR UNKNOWN INDICATION
     Dosage: DOSE - 2 PILLS X TWICE A DAY?FREQUENCY - WITH MEALS
     Route: 048
     Dates: start: 20160118, end: 20170719
  2. HYDROCHLOROTHIAZIDE. [Concomitant]
     Active Substance: HYDROCHLOROTHIAZIDE
  3. VITAMIN B12 [Concomitant]
     Active Substance: CYANOCOBALAMIN
  4. VITAMIN D [Concomitant]
     Active Substance: CHOLECALCIFEROL
  5. ALLOPURINOL. [Concomitant]
     Active Substance: ALLOPURINOL

REACTIONS (9)
  - Rash [None]
  - Diarrhoea [None]
  - Pain [None]
  - Abdominal pain upper [None]
  - Nephrolithiasis [None]
  - Polyp [None]
  - Urticaria [None]
  - Prostate infection [None]
  - Adenomatous polyposis coli [None]

NARRATIVE: CASE EVENT DATE: 2016
